FAERS Safety Report 16164361 (Version 1)
Quarter: 2019Q2

REPORT INFORMATION
  Report Type: Spontaneous
  Country: US (occurrence: US)
  Receive Date: 20190405
  Receipt Date: 20190405
  Transmission Date: 20190711
  Serious: No
  Sender: FDA-Public Use
  Company Number: US-TEVA-2019-US-1025869

PATIENT
  Sex: Female
  Weight: 88.98 kg

DRUGS (1)
  1. PENICILLIN V POTASSIUM 250 MG TABLET [Suspect]
     Active Substance: PENICILLIN V POTASSIUM
     Route: 065

REACTIONS (1)
  - Drug hypersensitivity [Unknown]
